FAERS Safety Report 24290810 (Version 1)
Quarter: 2024Q3

REPORT INFORMATION
  Report Type: Spontaneous
  Country: FR (occurrence: FR)
  Receive Date: 20240906
  Receipt Date: 20240906
  Transmission Date: 20241016
  Serious: Yes (Life-Threatening, Other)
  Sender: CELLTRION
  Company Number: FR-AFSSAPS-AN2024000359

PATIENT

DRUGS (9)
  1. TRUXIMA [Suspect]
     Active Substance: RITUXIMAB-ABBS
     Indication: Chronic lymphocytic leukaemia
     Dosage: 375 MG/M2, EVERY 4 WEEKS
     Route: 042
     Dates: start: 20180928, end: 20181220
  2. TRUXIMA [Suspect]
     Active Substance: RITUXIMAB-ABBS
     Dosage: 600 MG, EVERY 1 WEEK
     Route: 042
     Dates: start: 20181227, end: 20190110
  3. CYCLOPHOSPHAMIDE [Suspect]
     Active Substance: CYCLOPHOSPHAMIDE
     Indication: Chronic lymphocytic leukaemia
     Dosage: 1200 MG, 1 CYCLE
     Route: 048
     Dates: start: 20180930, end: 20181225
  4. FLUDARA [Suspect]
     Active Substance: FLUDARABINE PHOSPHATE
     Indication: Chronic lymphocytic leukaemia
     Dosage: 210 MG, CYCLIC
     Route: 048
     Dates: start: 20180930, end: 20181225
  5. IBRUTINIB [Suspect]
     Active Substance: IBRUTINIB
     Indication: Chronic lymphocytic leukaemia
     Dosage: 560 MG, EVERY 1 DAY
     Route: 048
     Dates: start: 20181205, end: 202301
  6. CHLORAMBUCIL [Suspect]
     Active Substance: CHLORAMBUCIL
     Indication: Chronic lymphocytic leukaemia
     Dosage: 2 MONTHS
     Route: 048
     Dates: start: 201807, end: 201809
  7. LEUCOVORIN CALCIUM [Suspect]
     Active Substance: LEUCOVORIN CALCIUM
     Indication: Prophylaxis
     Dosage: 1 DF, EVERY 1 WEEK
     Route: 048
     Dates: start: 20181007, end: 20181126
  8. BACTRIM [Suspect]
     Active Substance: SULFAMETHOXAZOLE\TRIMETHOPRIM
     Indication: Prophylaxis
     Dosage: 3 DF, EVERY 1 WEEK
     Route: 048
     Dates: start: 20181007, end: 20181126
  9. VALACYCLOVIR HYDROCHLORIDE [Suspect]
     Active Substance: VALACYCLOVIR HYDROCHLORIDE
     Indication: Prophylaxis
     Dosage: 1000 MG, EVERY 1 DAY
     Route: 048
     Dates: start: 20181007, end: 20181126

REACTIONS (2)
  - Intraductal papillary mucinous neoplasm [Not Recovered/Not Resolved]
  - Underdose [Unknown]

NARRATIVE: CASE EVENT DATE: 20200106
